FAERS Safety Report 14044116 (Version 1)
Quarter: 2017Q4

REPORT INFORMATION
  Report Type: Spontaneous
  Country: US (occurrence: US)
  Receive Date: 20171004
  Receipt Date: 20171004
  Transmission Date: 20180321
  Serious: Yes (Other)
  Sender: FDA-Public Use
  Company Number: US-AMGEN-USASP2017147468

PATIENT
  Age: 86 Year
  Sex: Female

DRUGS (1)
  1. PROLIA [Suspect]
     Active Substance: DENOSUMAB
     Indication: OSTEOPOROSIS POSTMENOPAUSAL
     Dosage: 60 MG, UNK
     Route: 065
     Dates: start: 20170608, end: 20170608

REACTIONS (5)
  - Hypotension [Unknown]
  - Glaucoma [Unknown]
  - Dyspnoea [Unknown]
  - Chest discomfort [Unknown]
  - Influenza [Unknown]

NARRATIVE: CASE EVENT DATE: 2017
